FAERS Safety Report 20000806 (Version 2)
Quarter: 2021Q4

REPORT INFORMATION
  Report Type: Spontaneous
  Country: JP (occurrence: JP)
  Receive Date: 20211027
  Receipt Date: 20211111
  Transmission Date: 20220304
  Serious: Yes (Hospitalization, Other)
  Sender: FDA-Public Use
  Company Number: JP-ONO-2021JP026190

PATIENT

DRUGS (1)
  1. OPDIVO [Suspect]
     Active Substance: NIVOLUMAB
     Indication: Gastric cancer
     Dosage: UNK
     Route: 041
     Dates: start: 20210908

REACTIONS (3)
  - Gastrointestinal perforation [Recovering/Resolving]
  - Colitis [Unknown]
  - Enteritis [Unknown]

NARRATIVE: CASE EVENT DATE: 20211020
